FAERS Safety Report 23124288 (Version 1)
Quarter: 2023Q4

REPORT INFORMATION
  Report Type: Spontaneous
  Country: US (occurrence: None)
  Receive Date: 20231027
  Receipt Date: 20231027
  Transmission Date: 20240109
  Serious: No
  Sender: FDA-Public Use
  Company Number: None

PATIENT
  Age: 38 Year
  Sex: Female

DRUGS (1)
  1. KESIMPTA [Suspect]
     Active Substance: OFATUMUMAB
     Route: 058
     Dates: start: 202211

REACTIONS (3)
  - Escherichia infection [None]
  - Kidney infection [None]
  - Drug hypersensitivity [None]

NARRATIVE: CASE EVENT DATE: 20231020
